FAERS Safety Report 23267999 (Version 1)
Quarter: 2023Q4

REPORT INFORMATION
  Report Type: Spontaneous
  Country: GB (occurrence: GB)
  Receive Date: 20231206
  Receipt Date: 20231206
  Transmission Date: 20240110
  Serious: Yes (Other)
  Sender: FDA-Public Use
  Company Number: None

PATIENT
  Age: 74 Year
  Sex: Male

DRUGS (1)
  1. OXYCODONE HYDROCHLORIDE [Suspect]
     Active Substance: OXYCODONE HYDROCHLORIDE
     Indication: Enteric neuropathy
     Dosage: 50 MILLIGRAM, DAILY
     Route: 065
     Dates: start: 2016

REACTIONS (7)
  - Constipation [Unknown]
  - Night sweats [Unknown]
  - Dry mouth [Unknown]
  - Somnolence [Unknown]
  - Dyspnoea [Unknown]
  - Pulmonary oedema [Unknown]
  - Drug ineffective [Unknown]
